FAERS Safety Report 4815180-3 (Version None)
Quarter: 2005Q4

REPORT INFORMATION
  Report Type: 
  Country: None (occurrence: None)
  Receive Date: 20051028
  Receipt Date: 20051024
  Transmission Date: 20060501
  Serious: Yes (Death, Hospitalization)
  Sender: FDA-Public Use
  Company Number: IT-MERCK-0510ITA00031

PATIENT
  Age: 64 Year
  Sex: Male

DRUGS (2)
  1. VIOXX [Suspect]
     Indication: BONE PAIN
     Route: 048
     Dates: start: 20000101, end: 20040101
  2. VIOXX [Suspect]
     Indication: MEDIASTINUM NEOPLASM
     Route: 048
     Dates: start: 20000101, end: 20040101

REACTIONS (2)
  - CARDIAC FAILURE [None]
  - CIRCULATORY COLLAPSE [None]
